FAERS Safety Report 6875676-X (Version None)
Quarter: 2010Q3

REPORT INFORMATION
  Report Type: 
  Country: None (occurrence: None)
  Receive Date: 20100727
  Receipt Date: 20070917
  Transmission Date: 20110219
  Serious: Yes (Hospitalization, Other)
  Sender: FDA-Public Use
  Company Number: US-PFIZER INC-2006122124

PATIENT
  Sex: Female
  Weight: 74.8 kg

DRUGS (8)
  1. CELEBREX [Suspect]
     Indication: RHEUMATOID ARTHRITIS
     Route: 048
  2. VIOXX [Suspect]
     Indication: RHEUMATOID ARTHRITIS
     Route: 048
     Dates: start: 20000101
  3. NAPROXEN [Concomitant]
     Dates: start: 20000415
  4. CAPTOPRIL [Concomitant]
     Dates: start: 20000415, end: 20030101
  5. NITROGLYCERIN [Concomitant]
     Dates: start: 19990824, end: 20040923
  6. NITROSTAT [Concomitant]
     Dates: start: 19991022, end: 20040727
  7. LANOXIN [Concomitant]
     Dates: start: 19990824, end: 20040527
  8. DIGITEK [Concomitant]
     Dates: start: 20001006, end: 20010329

REACTIONS (2)
  - CEREBROVASCULAR ACCIDENT [None]
  - MYOCARDIAL INFARCTION [None]
